FAERS Safety Report 26117641 (Version 2)
Quarter: 2025Q4

REPORT INFORMATION
  Report Type: Spontaneous
  Country: GB (occurrence: GB)
  Receive Date: 20251203
  Receipt Date: 20251209
  Transmission Date: 20260118
  Serious: Yes (Other)
  Sender: PHARMACOSMOS A/S
  Company Number: GB-NEBO-714761

PATIENT
  Age: 78 Year
  Sex: Male

DRUGS (15)
  1. IRON ISOMALTOSIDE 1000 [Suspect]
     Active Substance: IRON ISOMALTOSIDE 1000
     Indication: Product used for unknown indication
  2. ATORVASTATIN [Concomitant]
     Active Substance: ATORVASTATIN
  3. LANTUS [Concomitant]
     Active Substance: INSULIN GLARGINE
  4. LISINOPRIL [Concomitant]
     Active Substance: LISINOPRIL
  5. TROSPIUM [Concomitant]
     Active Substance: TROSPIUM
  6. TAMSULOSIN [Concomitant]
     Active Substance: TAMSULOSIN
  7. APIXABAN [Concomitant]
     Active Substance: APIXABAN
  8. BISOPROLOL [Concomitant]
     Active Substance: BISOPROLOL
  9. BUMETANIDE [Concomitant]
     Active Substance: BUMETANIDE
  10. CYANOCOBALAMIN [Concomitant]
     Active Substance: CYANOCOBALAMIN
  11. Epimax excetra [Concomitant]
  12. FINASTERIDE [Concomitant]
     Active Substance: FINASTERIDE
  13. METFORMIN [Concomitant]
     Active Substance: METFORMIN HYDROCHLORIDE
  14. DAPAGLIFLOZIN [Concomitant]
     Active Substance: DAPAGLIFLOZIN
  15. GLICLAZIDE [Concomitant]
     Active Substance: GLICLAZIDE

REACTIONS (3)
  - Oxygen saturation decreased [Unknown]
  - Hypotension [Unknown]
  - Bradycardia [Not Recovered/Not Resolved]
